FAERS Safety Report 4748809-9 (Version None)
Quarter: 2005Q3

REPORT INFORMATION
  Report Type: 
  Country: None (occurrence: None)
  Receive Date: 20050812
  Receipt Date: 20050707
  Transmission Date: 20060218
  Serious: Yes (Other)
  Sender: FDA-Public Use
  Company Number: 410322

PATIENT
  Age: 48 Year
  Sex: Female

DRUGS (7)
  1. PEGASYS [Suspect]
     Indication: HEPATITIS C VIRUS
     Dosage: 180 MCG 1 PER 1 WEEK SUBCUTANEOUS
     Route: 058
     Dates: start: 20050209
  2. COPEGUS [Suspect]
     Indication: HEPATITIS C VIRUS
     Dosage: 200 MG 6 PER 1 DAY ORAL
     Route: 048
     Dates: start: 20050209
  3. TOPROL-XL [Concomitant]
  4. BENICAR [Concomitant]
  5. DIURETIC (DIURETIC NOS) [Concomitant]
  6. PROCRIT [Concomitant]
  7. NEUPOGEN [Concomitant]

REACTIONS (8)
  - ANAEMIA [None]
  - EPISTAXIS [None]
  - INJECTION SITE HAEMORRHAGE [None]
  - INSOMNIA [None]
  - PLATELET COUNT DECREASED [None]
  - RASH [None]
  - SKIN DISCOLOURATION [None]
  - WHITE BLOOD CELL COUNT DECREASED [None]
